FAERS Safety Report 5065893-6 (Version None)
Quarter: 2006Q3

REPORT INFORMATION
  Report Type: 
  Country: None (occurrence: None)
  Receive Date: 20060728
  Receipt Date: 20060728
  Transmission Date: 20061208
  Serious: Yes (Hospitalization)
  Sender: FDA-Public Use
  Company Number: None

PATIENT
  Sex: Male
  Weight: 61.2 kg

DRUGS (1)
  1. OCTREOTIDE ACETATE [Suspect]
     Indication: HEPATIC NEOPLASM MALIGNANT
     Dosage: 20 MG  EVERY 28 DAYS  IM
     Route: 030
     Dates: start: 20060630, end: 20060630

REACTIONS (5)
  - ABASIA [None]
  - BLADDER DISTENSION [None]
  - DIPLEGIA [None]
  - METASTATIC NEOPLASM [None]
  - URINARY RETENTION [None]
